FAERS Safety Report 23050166 (Version 1)
Quarter: 2023Q4

REPORT INFORMATION
  Report Type: Spontaneous
  Country: US (occurrence: US)
  Receive Date: 20231010
  Receipt Date: 20231010
  Transmission Date: 20240110
  Serious: Yes (Other)
  Sender: FDA-Public Use
  Company Number: US-SA-2023SA301851

PATIENT
  Age: 75 Year
  Sex: Male

DRUGS (1)
  1. LEFLUNOMIDE [Suspect]
     Active Substance: LEFLUNOMIDE
     Dosage: UNK

REACTIONS (6)
  - Rheumatoid arthritis-associated interstitial lung disease [Unknown]
  - Respiratory distress [Unknown]
  - Condition aggravated [Unknown]
  - Cough [Unknown]
  - Lung opacity [Unknown]
  - Hypoxia [Unknown]
